FAERS Safety Report 10302630 (Version 1)
Quarter: 2014Q3

REPORT INFORMATION
  Report Type: Spontaneous
  Country: US (occurrence: US)
  Receive Date: 20140714
  Receipt Date: 20140714
  Transmission Date: 20150326
  Serious: No
  Sender: FDA-Public Use
  Company Number: US-009507513-1406USA013389

PATIENT
  Sex: Female

DRUGS (1)
  1. COPPERTONE ULTRAGUARD SPF 15 [Suspect]
     Active Substance: AVOBENZONE\HOMOSALATE\OCTISALATE\OXYBENZONE
     Indication: PRODUCT USED FOR UNKNOWN INDICATION
     Dosage: UNK, UNKNOWN
     Route: 061

REACTIONS (4)
  - Erythema [Unknown]
  - Unevaluable event [Unknown]
  - Product lot number issue [Unknown]
  - Circumstance or information capable of leading to medication error [Unknown]
